FAERS Safety Report 9855650 (Version 1)
Quarter: 2014Q1

REPORT INFORMATION
  Report Type: Spontaneous
  Country: US (occurrence: US)
  Receive Date: 20140130
  Receipt Date: 20140130
  Transmission Date: 20141002
  Serious: Yes (Death)
  Sender: FDA-Public Use
  Company Number: US-ASTELLAS-2014US000903

PATIENT
  Age: 82 Year
  Sex: Male

DRUGS (1)
  1. TARCEVA [Suspect]
     Indication: LUNG NEOPLASM MALIGNANT
     Dosage: 25 MG, UID/QD
     Route: 048
     Dates: start: 20130907, end: 20140121

REACTIONS (2)
  - Incorrect dose administered [Unknown]
  - Death [Unknown]
